FAERS Safety Report 17918026 (Version 2)
Quarter: 2020Q3

REPORT INFORMATION
  Report Type: Report from Study
  Country: US (occurrence: US)
  Receive Date: 20200619
  Receipt Date: 20200702
  Transmission Date: 20201103
  Serious: Yes (Other)
  Sender: FDA-Public Use
  Company Number: US-GILEAD-2020-0457465

PATIENT
  Age: 49 Year
  Sex: Female
  Weight: 59 kg

DRUGS (5)
  1. AMBRISENTAN [Suspect]
     Active Substance: AMBRISENTAN
     Indication: PULMONARY ARTERIAL HYPERTENSION
     Dosage: 10 MG, QD
     Route: 048
     Dates: start: 20150526
  2. REMODULIN [Suspect]
     Active Substance: TREPROSTINIL
     Dosage: 0.084 UG/KG
     Route: 042
  3. REMODULIN [Suspect]
     Active Substance: TREPROSTINIL
     Indication: PULMONARY ARTERIAL HYPERTENSION
     Dosage: 0.080 UG/KG
     Route: 042
     Dates: start: 20180705
  4. ADEMPAS [Suspect]
     Active Substance: RIOCIGUAT
     Indication: PRODUCT USED FOR UNKNOWN INDICATION
     Route: 065
  5. TADALAFIL. [Concomitant]
     Active Substance: TADALAFIL

REACTIONS (18)
  - Vascular device infection [Not Recovered/Not Resolved]
  - Pain in extremity [Unknown]
  - Arthralgia [Unknown]
  - Infusion site erythema [Unknown]
  - Seasonal allergy [Not Recovered/Not Resolved]
  - Diarrhoea [Not Recovered/Not Resolved]
  - Catheter site pruritus [Not Recovered/Not Resolved]
  - Dyspepsia [Unknown]
  - Urticaria [Not Recovered/Not Resolved]
  - Pain in jaw [Unknown]
  - Fatigue [Unknown]
  - Headache [Unknown]
  - Sinus disorder [Recovered/Resolved]
  - Infusion site irritation [Unknown]
  - Infusion site vesicles [Unknown]
  - Infusion site pruritus [Unknown]
  - Infusion site discharge [Not Recovered/Not Resolved]
  - Dyspnoea exertional [Not Recovered/Not Resolved]
